FAERS Safety Report 6150885-6 (Version None)
Quarter: 2009Q2

REPORT INFORMATION
  Report Type: 
  Country: None (occurrence: None)
  Receive Date: 20090408
  Receipt Date: 20090401
  Transmission Date: 20091009
  Serious: Yes (Other)
  Sender: FDA-Public Use
  Company Number: CHPA2009US08516

PATIENT
  Age: 52 Year
  Sex: Female
  Weight: 70.3 kg

DRUGS (1)
  1. EXCEDRIN (MIGRAINE) [Suspect]
     Indication: MIGRAINE
     Dosage: 2-4 DF, QD, ORAL
     Route: 048

REACTIONS (4)
  - DIABETES MELLITUS [None]
  - INTENTIONAL DRUG MISUSE [None]
  - OVERDOSE [None]
  - PRODUCT QUALITY ISSUE [None]
